FAERS Safety Report 19407526 (Version 1)
Quarter: 2021Q2

REPORT INFORMATION
  Report Type: Other
  Country: TR (occurrence: TR)
  Receive Date: 20210612
  Receipt Date: 20210612
  Transmission Date: 20210717
  Serious: Yes (Other)
  Sender: FDA-Public Use
  Company Number: TR-ROCHE-2843605

PATIENT
  Age: 48 Year
  Sex: Male

DRUGS (7)
  1. IPRATROPIUM BROMIDE. [Concomitant]
     Active Substance: IPRATROPIUM BROMIDE
  2. TOCILIZUMAB. [Suspect]
     Active Substance: TOCILIZUMAB
     Indication: COVID-19 PNEUMONIA
     Route: 042
  3. FORMOTEROL [Concomitant]
     Active Substance: FORMOTEROL
  4. FAVIPIRAVIR [Concomitant]
     Active Substance: FAVIPIRAVIR
     Route: 048
  5. BUDESONIDE. [Concomitant]
     Active Substance: BUDESONIDE
  6. HYDROXYCHLOROQUINE [Concomitant]
     Active Substance: HYDROXYCHLOROQUINE
     Route: 048
  7. ENOXAPARIN [Concomitant]
     Active Substance: ENOXAPARIN

REACTIONS (4)
  - Off label use [Unknown]
  - Respiratory arrest [Unknown]
  - Cardiac arrest [Unknown]
  - Anaphylactic reaction [Unknown]
